FAERS Safety Report 15048243 (Version 14)
Quarter: 2019Q2

REPORT INFORMATION
  Report Type: Report from Study
  Country: ES (occurrence: ES)
  Receive Date: 20180622
  Receipt Date: 20190528
  Transmission Date: 20190711
  Serious: Yes (Death, Hospitalization)
  Sender: FDA-Public Use
  Company Number: ES-ROCHE-2123276

PATIENT
  Age: 65 Year
  Sex: Male
  Weight: 81.6 kg

DRUGS (6)
  1. PARACETAMOL [Concomitant]
     Active Substance: ACETAMINOPHEN
     Indication: BACK PAIN
     Route: 065
     Dates: start: 20170613
  2. LYRICA [Concomitant]
     Active Substance: PREGABALIN
     Indication: NEUROTOXICITY
     Route: 065
     Dates: start: 20171024
  3. CARBOPLATIN. [Suspect]
     Active Substance: CARBOPLATIN
     Indication: NON-SMALL CELL LUNG CANCER STAGE IV
     Dosage: DOSE AS PER PROTOCOL: AREA UNDER THE CONCENTRATION-TIME CURVE (AUC) 6 MILLIGRAMS PER MILLILITER PER
     Route: 042
     Dates: start: 20160506
  4. BEVACIZUMAB. [Suspect]
     Active Substance: BEVACIZUMAB
     Indication: NON-SMALL CELL LUNG CANCER STAGE IV
     Dosage: MOST RECENT DOSE OF BEVACIZUMAB WAS 06/MAY/2016?MOST RECENT DOSE OF BEVACIZUMAB WAS ON 06/APR/2018 1
     Route: 042
     Dates: start: 20160506
  5. PACLITAXEL. [Suspect]
     Active Substance: PACLITAXEL
     Indication: NON-SMALL CELL LUNG CANCER STAGE IV
     Dosage: DATE OF MOST RECENT DOSE (372 MG) OF PACLITAXEL PRIOR TO ADVERSE EVENT ONSET 25/AUG/2016
     Route: 042
     Dates: start: 20160506
  6. ALLOPURINOL. [Concomitant]
     Active Substance: ALLOPURINOL
     Indication: GOUT
     Route: 065
     Dates: start: 20160804

REACTIONS (1)
  - Cholangitis [Fatal]

NARRATIVE: CASE EVENT DATE: 20180405
